FAERS Safety Report 8625224-9 (Version None)
Quarter: 2012Q3

REPORT INFORMATION
  Report Type: 
  Country: None (occurrence: None)
  Receive Date: 20120827
  Receipt Date: 20120820
  Transmission Date: 20120928
  Serious: No
  Sender: FDA-Public Use
  Company Number: US-B.I. PHARMACEUTICALS,INC./RIDGEFIELD-2012-BP-02290BP

PATIENT
  Age: 73 Year
  Sex: Male

DRUGS (3)
  1. LASIX [Concomitant]
     Indication: OVERWEIGHT
     Dosage: 80 MG
     Route: 048
  2. PRADAXA [Suspect]
     Indication: ATRIAL FIBRILLATION
     Dosage: 300 MG
     Route: 048
     Dates: start: 20100101
  3. RANITIDINE [Concomitant]
     Indication: GASTRIC ULCER

REACTIONS (5)
  - BURNING SENSATION [None]
  - CELLULITIS [None]
  - HAEMORRHAGE [None]
  - CONTUSION [None]
  - HAEMATOCHEZIA [None]
